FAERS Safety Report 25003473 (Version 2)
Quarter: 2025Q1

REPORT INFORMATION
  Report Type: Spontaneous
  Country: US (occurrence: US)
  Receive Date: 20250224
  Receipt Date: 20250325
  Transmission Date: 20250408
  Serious: No
  Sender: IPSEN BIOPHARMACEUTICALS, INC.
  Company Number: US-IPSEN Group, Research and Development-2025-03901

PATIENT
  Age: 61 Year
  Sex: Female

DRUGS (3)
  1. IQIRVO [Suspect]
     Active Substance: ELAFIBRANOR
     Indication: Primary biliary cholangitis
     Route: 048
     Dates: start: 202501
  2. IQIRVO [Suspect]
     Active Substance: ELAFIBRANOR
     Indication: Autoimmune hepatitis
  3. IQIRVO [Suspect]
     Active Substance: ELAFIBRANOR
     Indication: Off label use

REACTIONS (3)
  - Pruritus [Unknown]
  - Palpitations [Unknown]
  - Off label use [Unknown]

NARRATIVE: CASE EVENT DATE: 20250101
